FAERS Safety Report 15602590 (Version 1)
Quarter: 2018Q4

REPORT INFORMATION
  Report Type: Spontaneous
  Country: US (occurrence: US)
  Receive Date: 20181107
  Receipt Date: 20181107
  Transmission Date: 20190205
  Serious: Yes (Disabling)
  Sender: FDA-Public Use
  Company Number: None

PATIENT
  Age: 34 Year
  Sex: Female
  Weight: 69.85 kg

DRUGS (1)
  1. INTRAUTERINE DEVICE [Suspect]
     Active Substance: INTRAUTERINE DEVICE

REACTIONS (17)
  - Nausea [None]
  - Anxiety [None]
  - Neuralgia [None]
  - Visual impairment [None]
  - Photophobia [None]
  - Tachyphrenia [None]
  - Agitation [None]
  - Hyperacusis [None]
  - Skin burning sensation [None]
  - Tremor [None]
  - Complication associated with device [None]
  - Dizziness [None]
  - Mental impairment [None]
  - Hair colour changes [None]
  - Device toxicity [None]
  - Suicidal ideation [None]
  - Inflammation [None]
